FAERS Safety Report 18939673 (Version 4)
Quarter: 2021Q1

REPORT INFORMATION
  Report Type: Report from Study
  Country: US (occurrence: US)
  Receive Date: 20210224
  Receipt Date: 20210317
  Transmission Date: 20210420
  Serious: Yes (Other)
  Sender: FDA-Public Use
  Company Number: US-AMGEN-USASP2021027071

PATIENT
  Age: 69 Year
  Sex: Female

DRUGS (6)
  1. REPATHA [Suspect]
     Active Substance: EVOLOCUMAB
     Indication: TYPE IIA HYPERLIPIDAEMIA
  2. INSULIN [Concomitant]
     Active Substance: INSULIN NOS
  3. HUMALOG [Concomitant]
     Active Substance: INSULIN LISPRO
  4. TRULICITY [Concomitant]
     Active Substance: DULAGLUTIDE
  5. REPATHA [Suspect]
     Active Substance: EVOLOCUMAB
     Indication: HYPERCHOLESTEROLAEMIA
  6. REPATHA [Suspect]
     Active Substance: EVOLOCUMAB
     Indication: BLOOD CHOLESTEROL INCREASED
     Dosage: 140 MILLIGRAM, Q2WK
     Route: 065
     Dates: start: 2020

REACTIONS (5)
  - Glycosylated haemoglobin increased [Recovering/Resolving]
  - Diarrhoea [Recovering/Resolving]
  - Blood glucose increased [Unknown]
  - Metastatic uterine cancer [Recovered/Resolved]
  - Accidental exposure to product [Unknown]

NARRATIVE: CASE EVENT DATE: 2020
